FAERS Safety Report 7594089-9 (Version None)
Quarter: 2011Q3

REPORT INFORMATION
  Report Type: 
  Country: None (occurrence: None)
  Receive Date: 20110706
  Receipt Date: 20110630
  Transmission Date: 20111222
  Serious: Yes (Other)
  Sender: FDA-Public Use
  Company Number: US-PFIZER INC-2011147656

PATIENT
  Sex: Male
  Weight: 77.098 kg

DRUGS (15)
  1. LOSARTAN [Concomitant]
     Dosage: 100 MG, 1X/DAY
  2. GLIPIZIDE [Concomitant]
     Dosage: 10 MG, 2X/DAY
  3. UROXATRAL [Concomitant]
     Indication: PROSTATOMEGALY
     Dosage: 10 MG, 1X/DAY
  4. SPIRIVA [Concomitant]
     Dosage: UNK
  5. PRAVASTATIN [Concomitant]
     Dosage: 40 MG, 1X/DAY
  6. OMEPRAZOLE [Concomitant]
     Dosage: 20 MG, 1X/DAY
  7. DILANTIN [Suspect]
     Dosage: 100 MG, 2X/DAY
  8. DILANTIN [Suspect]
     Indication: CONVULSION
     Dosage: 100 MG, 1X/DAY
     Route: 048
  9. ACETYLSALICYLIC ACID [Concomitant]
     Dosage: 81 MG, 1X/DAY
  10. ADVAIR DISKUS 100/50 [Concomitant]
     Dosage: 250/50 MG, 2X/DAY
  11. NORVASC [Concomitant]
     Dosage: 10 MG, 1X/DAY
  12. AVODART [Concomitant]
     Indication: PROSTATOMEGALY
     Dosage: 0.5 MG, 1X/DAY
  13. ZANTAC [Concomitant]
     Dosage: 150 MG, 1X/DAY
  14. METFORMIN HYDROCHLORIDE/SITAGLIPTIN [Concomitant]
     Dosage: 50/100 MG, 1X/DAY
  15. METOPROLOL [Concomitant]
     Dosage: 100 MG, UNK

REACTIONS (5)
  - ANTICONVULSANT DRUG LEVEL DECREASED [None]
  - ANKLE FRACTURE [None]
  - BALANCE DISORDER [None]
  - ANTICONVULSANT DRUG LEVEL INCREASED [None]
  - FALL [None]
